FAERS Safety Report 9961494 (Version 1)
Quarter: 2014Q1

REPORT INFORMATION
  Report Type: Spontaneous
  Country: US (occurrence: None)
  Receive Date: 20140304
  Receipt Date: 20140304
  Transmission Date: 20141002
  Serious: Yes (Other)
  Sender: FDA-Public Use
  Company Number: None

PATIENT
  Sex: Female

DRUGS (1)
  1. HUMIRA 40MG PEN [Suspect]
     Indication: PSORIASIS
     Dates: start: 20120328

REACTIONS (1)
  - Bone marrow disorder [None]
